FAERS Safety Report 6558255-3 (Version None)
Quarter: 2010Q1

REPORT INFORMATION
  Report Type: 
  Country: None (occurrence: None)
  Receive Date: 20100128
  Receipt Date: 20100128
  Transmission Date: 20100710
  Serious: No
  Sender: FDA-Public Use
  Company Number: None

PATIENT
  Sex: Female
  Weight: 99.7913 kg

DRUGS (1)
  1. VESICARE [Suspect]
     Indication: HYPERTONIC BLADDER
     Dosage: 1 TABLET DAILY
     Dates: start: 20090901, end: 20100101

REACTIONS (4)
  - BACK PAIN [None]
  - BLOOD URINE PRESENT [None]
  - COUGH [None]
  - DRY MOUTH [None]
